FAERS Safety Report 23348845 (Version 1)
Quarter: 2023Q4

REPORT INFORMATION
  Report Type: Spontaneous
  Country: FR (occurrence: FR)
  Receive Date: 20231229
  Receipt Date: 20231229
  Transmission Date: 20240110
  Serious: Yes (Death, Life-Threatening)
  Sender: FDA-Public Use
  Company Number: None

PATIENT
  Age: 34 Year
  Sex: Male
  Weight: 99 kg

DRUGS (9)
  1. CONCERTA [Suspect]
     Active Substance: METHYLPHENIDATE HYDROCHLORIDE
     Indication: Product used for unknown indication
     Dosage: 1 CP LE MATIN
     Route: 048
     Dates: start: 20231204
  2. QUETIAPINE [Suspect]
     Active Substance: QUETIAPINE
     Indication: Schizophrenia
     Dosage: 1CP LE SOIR
     Route: 048
     Dates: start: 20231130
  3. METHYLPHENIDATE HYDROCHLORIDE [Suspect]
     Active Substance: METHYLPHENIDATE HYDROCHLORIDE
     Indication: Product used for unknown indication
     Dosage: 2 CP A 8H, 1 CP A 10H, 2 CP A 12H, 1 CP A 14H, 2 CP A 16H
     Route: 048
     Dates: start: 20231205
  4. TRIMEPRAZINE [Suspect]
     Active Substance: TRIMEPRAZINE
     Indication: Product used for unknown indication
     Dosage: 40MG AU COUCHER
     Route: 048
     Dates: start: 20231130
  5. TROSPIUM CHLORIDE [Suspect]
     Active Substance: TROSPIUM CHLORIDE
     Indication: Product used for unknown indication
     Dosage: 1 CP LE MATIN
     Route: 048
     Dates: start: 20231130
  6. LOXAPINE [Suspect]
     Active Substance: LOXAPINE
     Indication: Schizophrenia
     Dosage: 40 MG LE MATIN, A MIDI, LE SOIR ET LA NUIT SI BESOIN
     Route: 048
     Dates: start: 20231214
  7. LOXAPINE [Suspect]
     Active Substance: LOXAPINE
     Indication: Schizophrenia
     Dosage: 50 A 100 MG/J SI BESOIN
     Route: 048
     Dates: start: 20231130, end: 20231213
  8. LEVOMEPROMAZINE HYDROCHLORIDE [Suspect]
     Active Substance: LEVOMEPROMAZINE HYDROCHLORIDE
     Indication: Schizophrenia
     Dosage: 60 GOUTTES LA NUIT
     Route: 048
     Dates: start: 20231130
  9. CLOZAPINE [Suspect]
     Active Substance: CLOZAPINE
     Indication: Schizophrenia
     Dosage: 2 CP LE MATIN, 1 CP LE SOIR
     Route: 048
     Dates: start: 20231212

REACTIONS (1)
  - Large intestinal obstruction [Fatal]

NARRATIVE: CASE EVENT DATE: 20231214
